FAERS Safety Report 5256068-6 (Version None)
Quarter: 2007Q1

REPORT INFORMATION
  Report Type: 
  Country: None (occurrence: None)
  Receive Date: 20070302
  Receipt Date: 20070302
  Transmission Date: 20070707
  Serious: No
  Sender: FDA-Public Use
  Company Number: None

PATIENT
  Age: 39 Year
  Sex: Female

DRUGS (1)
  1. CYMBALTA [Suspect]
     Indication: ANXIETY
     Dosage: 30MG ONE DOSE
     Dates: start: 20070211

REACTIONS (15)
  - ANOREXIA [None]
  - ANXIETY [None]
  - DELUSION [None]
  - DIARRHOEA [None]
  - FATIGUE [None]
  - FEELING ABNORMAL [None]
  - HEART RATE INCREASED [None]
  - HYPERHIDROSIS [None]
  - HYPERVIGILANCE [None]
  - INSOMNIA [None]
  - MYDRIASIS [None]
  - NEURALGIA [None]
  - PAIN IN EXTREMITY [None]
  - PSYCHIATRIC SYMPTOM [None]
  - YAWNING [None]
